FAERS Safety Report 8485923-9 (Version None)
Quarter: 2012Q3

REPORT INFORMATION
  Report Type: 
  Country: None (occurrence: None)
  Receive Date: 20120703
  Receipt Date: 20120623
  Transmission Date: 20120928
  Serious: Yes (Hospitalization)
  Sender: FDA-Public Use
  Company Number: JP-ABBOTT-12P-087-0948952-00

PATIENT
  Sex: Male

DRUGS (4)
  1. RHEUMATREX [Suspect]
     Indication: RHEUMATOID ARTHRITIS
     Dosage: 6 MG/WEEK
     Route: 048
     Dates: start: 20110805, end: 20120617
  2. HUMIRA [Suspect]
     Indication: RHEUMATOID ARTHRITIS
     Route: 058
     Dates: start: 20111102, end: 20120613
  3. PREDNISOLONE SODIUM SUCCINATE INJ [Suspect]
     Indication: RHEUMATOID ARTHRITIS
     Route: 048
     Dates: start: 20110615
  4. FOLIC ACID [Concomitant]
     Indication: RHEUMATOID ARTHRITIS
     Dosage: 5 MG/WEEK
     Route: 048
     Dates: start: 20110805, end: 20120617

REACTIONS (6)
  - ORGANISING PNEUMONIA [None]
  - PNEUMONIA BACTERIAL [None]
  - COUGH [None]
  - MALAISE [None]
  - LUNG INFILTRATION [None]
  - ARTHRALGIA [None]
